FAERS Safety Report 6967865-0 (Version None)
Quarter: 2010Q3

REPORT INFORMATION
  Report Type: 
  Country: None (occurrence: None)
  Receive Date: 20100907
  Receipt Date: 20100420
  Transmission Date: 20110219
  Serious: No
  Sender: FDA-Public Use
  Company Number: A0853724A

PATIENT
  Sex: Male

DRUGS (4)
  1. ROPINIROLE [Suspect]
     Indication: RESTLESS LEGS SYNDROME
     Dosage: 10MG PER DAY
     Route: 048
     Dates: start: 20100301
  2. BLOOD PRESSURE MEDICATION [Concomitant]
  3. HYDROCHLOROTHIAZIDE [Concomitant]
  4. KLONOPIN [Concomitant]

REACTIONS (4)
  - DRUG INEFFECTIVE [None]
  - NAUSEA [None]
  - SLEEP DISORDER [None]
  - VOMITING [None]
